FAERS Safety Report 5862731-6 (Version None)
Quarter: 2008Q3

REPORT INFORMATION
  Report Type: 
  Country: None (occurrence: None)
  Receive Date: 20080827
  Receipt Date: 20080827
  Transmission Date: 20090109
  Serious: Yes (Other)
  Sender: FDA-Public Use
  Company Number: None

PATIENT
  Age: 47 Year
  Sex: Female
  Weight: 68.9 kg

DRUGS (1)
  1. RITUXIMAB 1000 MG GENETECH [Suspect]

REACTIONS (3)
  - CONDITION AGGRAVATED [None]
  - HEPATITIS B [None]
  - RHEUMATOID ARTHRITIS [None]
